FAERS Safety Report 9453957 (Version 2)
Quarter: 2013Q4

REPORT INFORMATION
  Report Type: Spontaneous
  Country: US (occurrence: US)
  Receive Date: 20130812
  Receipt Date: 20131022
  Transmission Date: 20140711
  Serious: Yes (Hospitalization, Other)
  Sender: FDA-Public Use
  Company Number: US-PFIZER INC-2013232059

PATIENT
  Age: 45 Year
  Sex: Female

DRUGS (4)
  1. CELEBREX [Suspect]
     Indication: RHEUMATOID ARTHRITIS
     Dosage: 400 MG, 1X/DAY (200 MG II QD)
     Route: 048
     Dates: end: 20130729
  2. SYNTHROID [Concomitant]
     Dosage: UNK
  3. ENBREL [Concomitant]
     Dosage: UNK
  4. LEFLUNOMIDE [Concomitant]
     Dosage: UNK

REACTIONS (2)
  - Enteritis [Recovering/Resolving]
  - Abdominal pain [Recovering/Resolving]
